FAERS Safety Report 10158028 (Version 3)
Quarter: 2014Q2

REPORT INFORMATION
  Report Type: Report from Study
  Country: AU (occurrence: AU)
  Receive Date: 20140507
  Receipt Date: 20140526
  Transmission Date: 20141212
  Serious: Yes (Hospitalization, Disabling, Other)
  Sender: FDA-Public Use
  Company Number: PHHY2014AU053062

PATIENT
  Age: 81 Year
  Sex: Female

DRUGS (1)
  1. SANDOSTATIN LAR [Suspect]
     Indication: CARCINOID SYNDROME
     Dosage: 20 MG, UNK
     Route: 030
     Dates: start: 20140408, end: 20140429

REACTIONS (7)
  - Faecaloma [Recovering/Resolving]
  - Intestinal obstruction [Recovered/Resolved]
  - Abdominal pain [Unknown]
  - Vomiting [Unknown]
  - Dehydration [Unknown]
  - Fatigue [Not Recovered/Not Resolved]
  - Pain [Recovering/Resolving]
